FAERS Safety Report 12832053 (Version 2)
Quarter: 2016Q4

REPORT INFORMATION
  Report Type: Spontaneous
  Country: CA (occurrence: CA)
  Receive Date: 20161010
  Receipt Date: 20161021
  Transmission Date: 20170207
  Serious: Yes (Other)
  Sender: FDA-Public Use
  Company Number: CA-ORION CORPORATION ORION PHARMA-TREX2016-1874

PATIENT
  Age: 79 Year
  Sex: Female

DRUGS (23)
  1. PANTOPRAZOLE [Concomitant]
     Active Substance: PANTOPRAZOLE SODIUM
     Route: 065
  2. REPAGLINIDE ACTAVIS [Concomitant]
     Active Substance: REPAGLINIDE
     Route: 065
     Dates: start: 20160826
  3. PROBIOTIC [Concomitant]
     Active Substance: PROBIOTICS NOS
     Route: 065
  4. PREDNISONE. [Concomitant]
     Active Substance: PREDNISONE
     Route: 065
  5. NOVO-METOPROL [Concomitant]
     Active Substance: METOPROLOL TARTRATE
     Route: 065
  6. METHOTREXATE (TRADE NAME UNKNOWN) [Suspect]
     Active Substance: METHOTREXATE
     Indication: RHEUMATOID ARTHRITIS
     Route: 065
     Dates: start: 2004
  7. ACLASTA [Concomitant]
     Active Substance: ZOLEDRONIC ACID
     Route: 042
     Dates: start: 20111118
  8. TYLENOL EXTRA STRENGTH [Concomitant]
     Active Substance: ACETAMINOPHEN
     Dosage: 6-8, MAXIMUM 2 AT 1 TIME
     Route: 065
  9. TRAJENTA [Concomitant]
     Active Substance: LINAGLIPTIN
     Route: 065
  10. PMS-OXYCODONE [Concomitant]
     Active Substance: OXYCODONE HYDROCHLORIDE
     Dosage: STRENGTH: 5 MG; 1 TO 2 TABLETS EVERY 3 HOURS WHEN NEEDED
     Route: 065
  11. LEFLUNOMIDE. [Suspect]
     Active Substance: LEFLUNOMIDE
     Route: 065
     Dates: start: 2006
  12. DIOVAN HCT [Concomitant]
     Active Substance: HYDROCHLOROTHIAZIDE\VALSARTAN
     Dosage: 160/12.5 MG
     Route: 065
  13. COENZYME Q10 [Concomitant]
     Active Substance: UBIDECARENONE
     Route: 065
  14. COLACE [Concomitant]
     Active Substance: DOCUSATE SODIUM
     Indication: FAECES SOFT
     Route: 065
  15. ENBREL [Suspect]
     Active Substance: ETANERCEPT
     Indication: RHEUMATOID ARTHRITIS
     Dosage: STRENGTH: 50 MG/ML
     Route: 065
     Dates: start: 200306, end: 2016
  16. SYNTHROID [Concomitant]
     Active Substance: LEVOTHYROXINE SODIUM
     Route: 065
     Dates: start: 20100630
  17. BASAGLAR [Concomitant]
     Active Substance: INSULIN GLARGINE
     Dosage: IN THE MORNING
     Route: 065
  18. CYMBALTA [Concomitant]
     Active Substance: DULOXETINE HYDROCHLORIDE
     Route: 065
  19. RESTORALAX [Concomitant]
     Active Substance: POLYETHYLENE GLYCOL 3350
     Route: 065
  20. ASPIRIN. [Concomitant]
     Active Substance: ASPIRIN
     Route: 065
  21. ADALAT CC [Concomitant]
     Active Substance: NIFEDIPINE
     Route: 065
  22. CRANBERRY. [Concomitant]
     Active Substance: CRANBERRY
     Route: 065
  23. VITAMIN D [Concomitant]
     Active Substance: CHOLECALCIFEROL
     Dosage: 1000
     Route: 065

REACTIONS (4)
  - Post procedural infection [Unknown]
  - Breast cancer [Unknown]
  - Urinary tract infection [Unknown]
  - Hepatic enzyme increased [Unknown]

NARRATIVE: CASE EVENT DATE: 2016
